FAERS Safety Report 8575472-1 (Version None)
Quarter: 2012Q3

REPORT INFORMATION
  Report Type: 
  Country: None (occurrence: None)
  Receive Date: 20120807
  Receipt Date: 20120731
  Transmission Date: 20120928
  Serious: Yes (Hospitalization, Other)
  Sender: FDA-Public Use
  Company Number: PHHY2011CA55236

PATIENT
  Sex: Female

DRUGS (2)
  1. SANDOSTATIN LAR [Suspect]
     Indication: CARCINOID TUMOUR OF THE SMALL BOWEL
     Dosage: 50 MG, EVERY THREE WEEKS
     Route: 030
     Dates: start: 20090505
  2. ANTIBIOTICS [Concomitant]

REACTIONS (16)
  - INTESTINAL OBSTRUCTION [None]
  - ERYTHEMA [None]
  - BLOOD PRESSURE SYSTOLIC INCREASED [None]
  - CONTUSION [None]
  - DRY SKIN [None]
  - VOMITING [None]
  - INJECTION SITE PAIN [None]
  - FLATULENCE [None]
  - FALL [None]
  - ARTHRALGIA [None]
  - DIARRHOEA [None]
  - OSTEOARTHRITIS [None]
  - SKIN WARM [None]
  - INJECTION SITE SWELLING [None]
  - OEDEMA PERIPHERAL [None]
  - EYE INJURY [None]
